FAERS Safety Report 23218481 (Version 1)
Quarter: 2023Q4

REPORT INFORMATION
  Report Type: Spontaneous
  Country: ES (occurrence: ES)
  Receive Date: 20231122
  Receipt Date: 20231122
  Transmission Date: 20240109
  Serious: Yes (Other)
  Sender: FDA-Public Use
  Company Number: ES-PFIZER INC-202300352025

PATIENT
  Age: 62 Year
  Sex: Female

DRUGS (8)
  1. LETROZOLE [Suspect]
     Active Substance: LETROZOLE
     Indication: Product used for unknown indication
     Dosage: (1-0-0), 1X/DAY, CONTINUOUSLY
     Route: 065
     Dates: start: 201804, end: 202302
  2. IBRANCE [Suspect]
     Active Substance: PALBOCICLIB
     Indication: Product used for unknown indication
     Dosage: 100 MG,1X/DAY (1-0-0) DURING 21 DAYS,EVERY 28 DAYS
     Route: 065
     Dates: start: 201809, end: 202302
  3. IBRANCE [Suspect]
     Active Substance: PALBOCICLIB
     Dosage: 125 MG, 1X/DAY (1-0-0) DURING 21 DAYS, EVERY 28 DAYS DURING 4 CYCLES
     Route: 065
     Dates: start: 201804, end: 201809
  4. FERBISOL [Concomitant]
     Dosage: UNK
     Route: 065
  5. CALCIUM\VITAMIN D [Concomitant]
     Active Substance: CALCIUM\VITAMIN D
     Dosage: UNK
     Route: 065
     Dates: start: 20220718
  6. URSOBILANE [Concomitant]
     Dosage: UNK
     Route: 065
  7. Daflon [Concomitant]
     Dosage: UNK
     Route: 065
  8. ITRAGERM [Concomitant]
     Dosage: UNK
     Route: 065

REACTIONS (10)
  - Neutropenia [Unknown]
  - Neoplasm progression [Unknown]
  - Tooth extraction [Unknown]
  - Dental prosthesis placement [Unknown]
  - Osteopenia [Recovered/Resolved]
  - Musculoskeletal chest pain [Unknown]
  - Arthralgia [Unknown]
  - Hot flush [Recovering/Resolving]
  - Weight increased [Recovering/Resolving]
  - Anxiety [Unknown]

NARRATIVE: CASE EVENT DATE: 20200101
